FAERS Safety Report 9796861 (Version 4)
Quarter: 2014Q1

REPORT INFORMATION
  Report Type: Spontaneous
  Country: JP (occurrence: JP)
  Receive Date: 20140103
  Receipt Date: 20140203
  Transmission Date: 20141002
  Serious: Yes (Hospitalization)
  Sender: FDA-Public Use
  Company Number: US-ASTRAZENECA-2014SE00146

PATIENT
  Age: 696 Day
  Sex: Male

DRUGS (7)
  1. SYNAGIS [Suspect]
     Indication: ANTIVIRAL PROPHYLAXIS
     Dosage: LIQUID
     Route: 030
     Dates: start: 201309, end: 201309
  2. SYNAGIS [Suspect]
     Indication: ANTIVIRAL PROPHYLAXIS
     Route: 030
     Dates: start: 20131003, end: 20131003
  3. SYNAGIS [Suspect]
     Indication: ANTIVIRAL PROPHYLAXIS
     Route: 030
     Dates: start: 20131108, end: 20131108
  4. SYNAGIS [Suspect]
     Indication: ANTIVIRAL PROPHYLAXIS
     Route: 030
     Dates: start: 20131212, end: 20131212
  5. SYNAGIS [Suspect]
     Indication: ANTIVIRAL PROPHYLAXIS
     Route: 030
  6. HAEMOPHILUS B CONJUGATE VACCINE [Suspect]
     Indication: PRODUCT USED FOR UNKNOWN INDICATION
     Route: 065
     Dates: start: 20131118
  7. PREDNISOLONE [Concomitant]
     Indication: FOCAL SEGMENTAL GLOMERULOSCLEROSIS

REACTIONS (2)
  - Nephrotic syndrome [Recovered/Resolved]
  - Pyrexia [Unknown]
